FAERS Safety Report 25710276 (Version 1)
Quarter: 2025Q3

REPORT INFORMATION
  Report Type: Spontaneous
  Country: US (occurrence: US)
  Receive Date: 20250821
  Receipt Date: 20250821
  Transmission Date: 20251021
  Serious: Yes (Hospitalization)
  Sender: ANI
  Company Number: US-ANIPHARMA-2025-US-038149

PATIENT
  Age: 48 Year
  Sex: Male

DRUGS (1)
  1. CORTICOTROPIN [Suspect]
     Active Substance: CORTICOTROPIN
     Indication: Pulmonary sarcoidosis
     Dates: start: 202506

REACTIONS (3)
  - Product administration interrupted [Not Recovered/Not Resolved]
  - Contraindicated product administered [Unknown]
  - Hospitalisation [Not Recovered/Not Resolved]
